FAERS Safety Report 8341692-4 (Version None)
Quarter: 2012Q2

REPORT INFORMATION
  Report Type: 
  Country: None (occurrence: None)
  Receive Date: 20120507
  Receipt Date: 20120427
  Transmission Date: 20120825
  Serious: Yes (Hospitalization, Other)
  Sender: FDA-Public Use
  Company Number: JP-JNJFOC-20120405957

PATIENT
  Age: 56 Year
  Sex: Male
  Weight: 58 kg

DRUGS (6)
  1. ITRACONAZOLE [Suspect]
     Indication: BRONCHOPULMONARY ASPERGILLOSIS
     Dosage: ON DAY 33 ITRACONAZOLE WAS STARTED AND STOPPED ON DAY 75 OF HOSPITALIZATION
     Route: 048
  2. ERYTHROMYCIN [Suspect]
     Indication: BRONCHOPULMONARY ASPERGILLOSIS
     Route: 065
  3. ITRACONAZOLE [Suspect]
     Route: 048
     Dates: end: 20051201
  4. CLARITHROMYCIN [Suspect]
     Indication: BRONCHOPULMONARY ASPERGILLOSIS
     Route: 065
     Dates: end: 20051201
  5. CLARITHROMYCIN [Suspect]
     Route: 065
  6. BECLOMETHASONE DIPROPIONATE [Suspect]
     Indication: BRONCHOPULMONARY ASPERGILLOSIS
     Route: 055

REACTIONS (2)
  - PULMONARY GRANULOMA [None]
  - DRUG-INDUCED LIVER INJURY [None]
